FAERS Safety Report 5818256-7 (Version None)
Quarter: 2008Q3

REPORT INFORMATION
  Report Type: 
  Country: None (occurrence: None)
  Receive Date: 20080722
  Receipt Date: 20080710
  Transmission Date: 20090109
  Serious: Yes (Hospitalization, Other)
  Sender: FDA-Public Use
  Company Number: US-PFIZER INC-2008058222

PATIENT
  Sex: Male
  Weight: 68 kg

DRUGS (3)
  1. GEODON [Suspect]
  2. ZOLOFT [Suspect]
     Indication: DEPRESSION
  3. LEVOXYL [Concomitant]
     Indication: THYROID DISORDER

REACTIONS (10)
  - ACTIVITIES OF DAILY LIVING IMPAIRED [None]
  - AGGRESSION [None]
  - DISCOMFORT [None]
  - DISSOCIATION [None]
  - DISTURBANCE IN ATTENTION [None]
  - DRUG DOSE OMISSION [None]
  - MUSCULOSKELETAL STIFFNESS [None]
  - SEDATION [None]
  - THINKING ABNORMAL [None]
  - TREMOR [None]
